FAERS Safety Report 26094190 (Version 3)
Quarter: 2025Q4

REPORT INFORMATION
  Report Type: Report from Study
  Country: CO (occurrence: CO)
  Receive Date: 20251126
  Receipt Date: 20251209
  Transmission Date: 20260117
  Serious: Yes (Hospitalization, Other)
  Sender: TAKEDA
  Company Number: CO-TAKEDA-2024TUS065520

PATIENT
  Age: 46 Year
  Sex: Male
  Weight: 71 kg

DRUGS (1)
  1. VEDOLIZUMAB [Suspect]
     Active Substance: VEDOLIZUMAB
     Indication: Crohn^s disease
     Dosage: 300 MILLIGRAM
     Dates: start: 20230105, end: 20250923

REACTIONS (7)
  - Gastrointestinal anastomotic stenosis [Unknown]
  - Malaise [Unknown]
  - Discouragement [Unknown]
  - Hyperhidrosis [Unknown]
  - Pyrexia [Unknown]
  - Treatment noncompliance [Unknown]
  - Influenza [Unknown]

NARRATIVE: CASE EVENT DATE: 20241017
